FAERS Safety Report 5264074-0 (Version None)
Quarter: 2007Q1

REPORT INFORMATION
  Report Type: 
  Country: None (occurrence: None)
  Receive Date: 20061213
  Receipt Date: 20041129
  Transmission Date: 20070707
  Serious: Yes (Other)
  Sender: FDA-Public Use
  Company Number: 2004UW24428

PATIENT
  Age: 72 Year
  Sex: Male
  Weight: 77.11 kg

DRUGS (2)
  1. IRESSA [Suspect]
     Indication: LUNG NEOPLASM MALIGNANT
  2. ATENOLOL [Concomitant]

REACTIONS (4)
  - BLOOD BLISTER [None]
  - DERMATITIS ACNEIFORM [None]
  - DYSGEUSIA [None]
  - WEIGHT DECREASED [None]
